FAERS Safety Report 6807422-X (Version None)
Quarter: 2010Q2

REPORT INFORMATION
  Report Type: 
  Country: None (occurrence: None)
  Receive Date: 20100629
  Receipt Date: 20081027
  Transmission Date: 20101027
  Serious: No
  Sender: FDA-Public Use
  Company Number: US-PFIZER INC-2008076676

PATIENT
  Sex: Male
  Weight: 79.545 kg

DRUGS (2)
  1. VIAGRA [Suspect]
     Indication: ERECTILE DYSFUNCTION
     Dates: start: 19980101
  2. CIALIS [Concomitant]

REACTIONS (1)
  - DRUG INEFFECTIVE [None]
